FAERS Safety Report 10007223 (Version 1)
Quarter: 2014Q1

REPORT INFORMATION
  Report Type: Spontaneous
  Country: MX (occurrence: MX)
  Receive Date: 20140313
  Receipt Date: 20140313
  Transmission Date: 20141002
  Serious: Yes (Death, Other)
  Sender: FDA-Public Use
  Company Number: MX-PFIZER INC-2014069784

PATIENT
  Age: 72 Year
  Sex: Female
  Weight: 45 kg

DRUGS (3)
  1. VIAGRA [Suspect]
     Indication: PULMONARY HYPERTENSION
     Dosage: UNK
     Route: 048
  2. LERTUS /CHL/ [Concomitant]
     Indication: PULMONARY HYPERTENSION
     Dosage: 50 MG, 2X/DAY
     Route: 048
     Dates: start: 2009
  3. LANOXIN [Concomitant]
     Indication: PULMONARY ARTERY WALL HYPERTROPHY
     Dosage: UNK
     Route: 048
     Dates: start: 20140108

REACTIONS (2)
  - Respiratory failure [Fatal]
  - Off label use [Unknown]
